FAERS Safety Report 15083427 (Version 1)
Quarter: 2018Q2

REPORT INFORMATION
  Report Type: Spontaneous
  Country: US (occurrence: US)
  Receive Date: 20180607
  Receipt Date: 20180607
  Transmission Date: 20180711
  Serious: No
  Sender: FDA-Public Use
  Company Number: None

PATIENT
  Age: 44 Year
  Sex: Female

DRUGS (1)
  1. MYCOPHENOLATE MOF TAB 500MG [Suspect]
     Active Substance: MYCOPHENOLATE MOFETIL
     Dates: start: 20170601, end: 20180607

REACTIONS (7)
  - Depression [None]
  - Vasculitis [None]
  - Memory impairment [None]
  - Visual impairment [None]
  - Fall [None]
  - Myositis [None]
  - Confusional state [None]

NARRATIVE: CASE EVENT DATE: 20180606
